FAERS Safety Report 18533541 (Version 1)
Quarter: 2020Q4

REPORT INFORMATION
  Report Type: Spontaneous
  Country: FR (occurrence: FR)
  Receive Date: 20201123
  Receipt Date: 20201123
  Transmission Date: 20210114
  Serious: Yes (Hospitalization)
  Sender: FDA-Public Use
  Company Number: FR-TEVA-2020-FR-1850307

PATIENT
  Age: 82 Year
  Sex: Female
  Weight: 68 kg

DRUGS (3)
  1. VISIPAQUE [Suspect]
     Active Substance: IODIXANOL
     Indication: COMPUTERISED TOMOGRAM
     Dosage: UNIT DOSE 1 DOSAGE FORMS ,1 DOSE
     Route: 041
     Dates: start: 20200917, end: 20200917
  2. OLUMIANT [Suspect]
     Active Substance: BARICITINIB
     Indication: DERMATOMYOSITIS
     Dosage: 2 MG
     Route: 048
     Dates: start: 20200911, end: 20200922
  3. LANSOPRAZOLE. [Suspect]
     Active Substance: LANSOPRAZOLE
     Indication: GASTROOESOPHAGEAL REFLUX PROPHYLAXIS
     Dosage: 15 MG
     Route: 048
     Dates: start: 20200911, end: 20200922

REACTIONS (1)
  - Acute generalised exanthematous pustulosis [Recovering/Resolving]

NARRATIVE: CASE EVENT DATE: 20200920
